FAERS Safety Report 20470080 (Version 1)
Quarter: 2022Q1

REPORT INFORMATION
  Report Type: Spontaneous
  Country: US (occurrence: US)
  Receive Date: 20220214
  Receipt Date: 20220214
  Transmission Date: 20220423
  Serious: No
  Sender: FDA-Public Use
  Company Number: US-MYLANLABS-2022M1005234

PATIENT
  Age: 58 Year
  Sex: Female
  Weight: 88.45 kg

DRUGS (5)
  1. ESTRADIOL TRANSDERMAL SYSTEM [Suspect]
     Active Substance: ESTRADIOL
     Indication: Hypothyroidism
     Dosage: 0.037 MILLIGRAM, QD,(TWICE-WEEKLY)
     Route: 062
     Dates: start: 202112, end: 20220115
  2. ESTRADIOL TRANSDERMAL SYSTEM [Suspect]
     Active Substance: ESTRADIOL
     Dosage: 0.0375 MILLIGRAM, QD,(TWICE-WEEKLY)
     Route: 062
     Dates: start: 202201
  3. LEVOTHYROXINE [Concomitant]
     Active Substance: LEVOTHYROXINE
     Indication: Hypothyroidism
     Dosage: 0.075 MILLIGRAM, QD
     Route: 048
  4. ROSUVASTATIN [Concomitant]
     Active Substance: ROSUVASTATIN
     Indication: Blood cholesterol
     Dosage: 10 MILLIGRAM, QD
     Route: 048
  5. ARMODAFINIL [Concomitant]
     Active Substance: ARMODAFINIL
     Indication: Fatigue
     Dosage: 150 MILLIGRAM, BID

REACTIONS (4)
  - Hot flush [Unknown]
  - Mood swings [Unknown]
  - Drug ineffective [Unknown]
  - Off label use [Unknown]

NARRATIVE: CASE EVENT DATE: 20211201
